FAERS Safety Report 11070567 (Version 2)
Quarter: 2015Q2

REPORT INFORMATION
  Report Type: Spontaneous
  Country: AT (occurrence: AT)
  Receive Date: 20150427
  Receipt Date: 20150507
  Transmission Date: 20150821
  Serious: Yes (Death, Hospitalization, Other)
  Sender: FDA-Public Use
  Company Number: AT-ABBVIE-15P-009-1381817-00

PATIENT
  Age: 60 Year
  Sex: Female

DRUGS (1)
  1. DUODOPA [Suspect]
     Active Substance: CARBIDOPA\LEVODOPA
     Indication: PARKINSON^S DISEASE
     Dosage: 24 HR THERAPY:MD: 7.0 ML, KR1: 2.7 ML/H, KR2: 2.2 ML/H, ED: 1.3 ML
     Route: 065
     Dates: start: 20130924

REACTIONS (5)
  - General physical health deterioration [Unknown]
  - Depressed level of consciousness [Unknown]
  - Death [Fatal]
  - Dyspnoea [Unknown]
  - Femur fracture [Unknown]

NARRATIVE: CASE EVENT DATE: 20150506
